FAERS Safety Report 14152180 (Version 1)
Quarter: 2017Q4

REPORT INFORMATION
  Report Type: Spontaneous
  Country: US (occurrence: None)
  Receive Date: 20171102
  Receipt Date: 20171102
  Transmission Date: 20180321
  Serious: Yes (Other)
  Sender: FDA-Public Use
  Company Number: None

PATIENT
  Age: 63 Year
  Sex: Female

DRUGS (1)
  1. HARVONI [Suspect]
     Active Substance: LEDIPASVIR\SOFOSBUVIR
     Indication: HEPATITIS C
     Dosage: 90/400MG QD PO
     Route: 048
     Dates: start: 20171010

REACTIONS (3)
  - Gastrointestinal motility disorder [None]
  - Abdominal discomfort [None]
  - Fatigue [None]

NARRATIVE: CASE EVENT DATE: 20171017
